FAERS Safety Report 5939620-1 (Version None)
Quarter: 2008Q4

REPORT INFORMATION
  Report Type: 
  Country: None (occurrence: None)
  Receive Date: 20081030
  Receipt Date: 20081030
  Transmission Date: 20090506
  Serious: No
  Sender: FDA-Public Use
  Company Number: None

PATIENT
  Sex: Female
  Weight: 52.1637 kg

DRUGS (3)
  1. LYRICA [Suspect]
     Indication: DYSTONIA
     Dosage: 75MG BID
     Dates: start: 20080910, end: 20080911
  2. LYRICA [Suspect]
     Indication: INTERVERTEBRAL DISC DISORDER
     Dosage: 75MG BID
     Dates: start: 20080910, end: 20080911
  3. LYRICA [Suspect]
     Indication: PAIN MANAGEMENT
     Dosage: 75MG BID
     Dates: start: 20080910, end: 20080911

REACTIONS (6)
  - COGNITIVE DISORDER [None]
  - FEELING ABNORMAL [None]
  - HALLUCINATION [None]
  - HANGOVER [None]
  - MOTOR DYSFUNCTION [None]
  - SPEECH DISORDER [None]
